FAERS Safety Report 25796763 (Version 1)
Quarter: 2025Q3

REPORT INFORMATION
  Report Type: Spontaneous
  Country: US (occurrence: US)
  Receive Date: 20250912
  Receipt Date: 20250912
  Transmission Date: 20251021
  Serious: Yes (Other)
  Sender: ANI
  Company Number: US-ANIPHARMA-2025-US-017225

PATIENT
  Age: 67 Year
  Sex: Female
  Weight: 54.43 kg

DRUGS (24)
  1. CORTICOTROPIN [Suspect]
     Active Substance: CORTICOTROPIN
     Indication: Multiple sclerosis
     Route: 058
     Dates: start: 20250312, end: 20250320
  2. METHOCARBAMOL [Concomitant]
     Active Substance: METHOCARBAMOL
  3. Vit D3 K2 [Concomitant]
  4. HERBALS\TURMERIC [Concomitant]
     Active Substance: HERBALS\TURMERIC
  5. MAGNESIUM [Concomitant]
     Active Substance: MAGNESIUM
  6. OMEGA 3 [Concomitant]
     Active Substance: CAPSAICIN
  7. PROBIOTICS NOS [Concomitant]
     Active Substance: PROBIOTICS NOS
  8. ZINC [Concomitant]
     Active Substance: ZINC
  9. FOLIC ACID [Concomitant]
     Active Substance: FOLIC ACID
  10. CLARITIN [Concomitant]
     Active Substance: LORATADINE
  11. AFRIN [Concomitant]
     Active Substance: OXYMETAZOLINE HYDROCHLORIDE
  12. LOSARTAN [Concomitant]
     Active Substance: LOSARTAN
  13. VOLTAREN [Concomitant]
     Active Substance: DICLOFENAC SODIUM
  14. CLOBETASOL gel [Concomitant]
  15. MYRBETRIQ [Concomitant]
     Active Substance: MIRABEGRON
  16. FRANKINCENSE [Concomitant]
     Active Substance: FRANKINCENSE
  17. VICKS VAPORUB [Concomitant]
     Active Substance: CAMPHOR (SYNTHETIC)\EUCALYPTUS OIL\MENTHOL
  18. OCREVUS [Concomitant]
     Active Substance: OCRELIZUMAB
  19. DALFAMPRIDINE [Concomitant]
     Active Substance: DALFAMPRIDINE
  20. TIZANIDINE [Concomitant]
     Active Substance: TIZANIDINE
  21. KLONOPIN [Concomitant]
     Active Substance: CLONAZEPAM
  22. LACTULOSE [Concomitant]
     Active Substance: LACTULOSE
  23. DUPIXENT [Concomitant]
     Active Substance: DUPILUMAB
  24. Vit B12 injections [Concomitant]

REACTIONS (25)
  - Malaise [Recovered/Resolved]
  - Eczema [Unknown]
  - Oedema [Unknown]
  - Paraesthesia [Recovered/Resolved]
  - Eye discharge [Recovered/Resolved]
  - Peripheral swelling [Recovering/Resolving]
  - Product dose omission issue [Recovered/Resolved]
  - Secretion discharge [Recovered/Resolved]
  - Back pain [Recovered/Resolved]
  - Condition aggravated [Recovered/Resolved]
  - Impaired healing [Unknown]
  - Fatigue [Recovered/Resolved]
  - Contraindicated product administered [Recovered/Resolved]
  - Nausea [Recovered/Resolved]
  - Lymphoedema [Recovered/Resolved]
  - Pruritus [Not Recovered/Not Resolved]
  - Skin wound [Not Recovered/Not Resolved]
  - Alopecia [Not Recovered/Not Resolved]
  - Skin exfoliation [Not Recovered/Not Resolved]
  - Diarrhoea [Recovered/Resolved]
  - Dyspepsia [Recovered/Resolved]
  - Gait disturbance [Recovering/Resolving]
  - Vision blurred [Recovered/Resolved]
  - Increased appetite [Recovered/Resolved]
  - Muscular weakness [Recovered/Resolved]

NARRATIVE: CASE EVENT DATE: 20250301
